FAERS Safety Report 5137615-1 (Version None)
Quarter: 2006Q4

REPORT INFORMATION
  Report Type: 
  Country: None (occurrence: None)
  Receive Date: 20061030
  Receipt Date: 20051205
  Transmission Date: 20070319
  Serious: No
  Sender: FDA-Public Use
  Company Number: US-GLAXOSMITHKLINE-A0584638A

PATIENT
  Age: 71 Year
  Sex: Female

DRUGS (13)
  1. ADVAIR HFA [Suspect]
     Indication: CHRONIC OBSTRUCTIVE PULMONARY DISEASE
     Dosage: 1PUFF TWICE PER DAY
     Route: 055
     Dates: end: 20051130
  2. PRANDIN [Concomitant]
  3. GLUCOPHAGE [Concomitant]
  4. SPIRONOLACTONE [Concomitant]
  5. HYDROCHLOROTHIAZIDE [Concomitant]
  6. ALLEGRA [Concomitant]
  7. MUCINEX [Concomitant]
  8. ASPIRIN [Concomitant]
  9. ZETIA [Concomitant]
  10. ACTONEL [Concomitant]
  11. FOLIC ACID [Concomitant]
  12. VITAMIN D [Concomitant]
  13. CENTRUM SILVER [Concomitant]

REACTIONS (3)
  - HYPOAESTHESIA [None]
  - MUSCLE TWITCHING [None]
  - PARAESTHESIA [None]
